FAERS Safety Report 8250674-2 (Version None)
Quarter: 2012Q2

REPORT INFORMATION
  Report Type: 
  Country: None (occurrence: None)
  Receive Date: 20120402
  Receipt Date: 20120326
  Transmission Date: 20120825
  Serious: Yes (Hospitalization, Other)
  Sender: FDA-Public Use
  Company Number: JP-PFIZER INC-2012077677

PATIENT

DRUGS (1)
  1. TOLTERODINE TARTRATE [Suspect]
     Dosage: 1 DF, UNK
     Route: 048
     Dates: start: 20120312, end: 20120312

REACTIONS (4)
  - BLOOD CREATININE INCREASED [None]
  - GENERALISED OEDEMA [None]
  - HAEMATURIA [None]
  - URINARY RETENTION [None]
